FAERS Safety Report 25613407 (Version 1)
Quarter: 2025Q3

REPORT INFORMATION
  Report Type: Spontaneous
  Country: US (occurrence: None)
  Receive Date: 20250728
  Receipt Date: 20250728
  Transmission Date: 20251021
  Serious: Yes (Other)
  Sender: FDA-CTU
  Company Number: None

PATIENT
  Sex: Male

DRUGS (1)
  1. CLOBETASOL PROPIONATE [Suspect]
     Active Substance: CLOBETASOL PROPIONATE
     Indication: Eczema
     Route: 061
     Dates: start: 20250722, end: 20250726

REACTIONS (3)
  - Application site irritation [None]
  - Application site erythema [None]
  - Therapy cessation [None]

NARRATIVE: CASE EVENT DATE: 20250722
